FAERS Safety Report 8275724-9 (Version None)
Quarter: 2012Q2

REPORT INFORMATION
  Report Type: 
  Country: None (occurrence: None)
  Receive Date: 20120410
  Receipt Date: 20120410
  Transmission Date: 20120825
  Serious: Yes (Hospitalization)
  Sender: FDA-Public Use
  Company Number: None

PATIENT
  Age: 61 Year
  Sex: Male
  Weight: 77.7 kg

DRUGS (15)
  1. OXALIPLATIN [Suspect]
     Indication: PANCREATIC CARCINOMA
     Dosage: 120 MG (60 MG/M2) Q 2 WEEKS 042
  2. TYLENOL (CAPLET) [Concomitant]
  3. LOVENOX [Concomitant]
  4. COLACE [Concomitant]
  5. IRINOTECAN HCL [Suspect]
     Indication: PANCREATIC CARCINOMA
     Dosage: 180 MG (90 MG/M2) Q 2 WEEKS 042
     Dates: start: 20120224, end: 20120313
  6. PROTONIX [Concomitant]
  7. LACTULOSE [Concomitant]
  8. OXYCODONE HCL [Concomitant]
  9. OXYCODONE HCL [Concomitant]
  10. NORVASC [Concomitant]
  11. ATROPINE [Concomitant]
  12. BENADRYL [Concomitant]
  13. DECADRON [Concomitant]
  14. LOVASTATIN [Concomitant]
  15. ALOXI [Concomitant]

REACTIONS (7)
  - CONSTIPATION [None]
  - HYPOXIA [None]
  - ABDOMINAL PAIN UPPER [None]
  - METASTASES TO LUNG [None]
  - ASCITES [None]
  - ILEUS [None]
  - MUSCULOSKELETAL PAIN [None]
